FAERS Safety Report 22617758 (Version 1)
Quarter: 2023Q2

REPORT INFORMATION
  Report Type: Other
  Country: None (occurrence: JP)
  Receive Date: 20230620
  Receipt Date: 20230620
  Transmission Date: 20230721
  Serious: Yes (Hospitalization, Other)
  Sender: FDA-Public Use
  Company Number: JP-Changzhou Pharmaceutical Factory-2142879

PATIENT
  Age: 62 Year
  Sex: Male

DRUGS (4)
  1. ROSUVASTATIN CALCIUM [Suspect]
     Active Substance: ROSUVASTATIN CALCIUM
     Indication: Product used for unknown indication
     Route: 065
  2. VADADUSTAT [Interacting]
     Active Substance: VADADUSTAT
     Route: 065
  3. EPOETIN BETA\POLYETHYLENE GLYCOL [Concomitant]
     Active Substance: ERYTHROPOIETIN\POLYETHYLENE GLYCOLS
     Route: 065
  4. AZOSEMIDE [Concomitant]
     Active Substance: AZOSEMIDE
     Route: 065

REACTIONS (2)
  - Rhabdomyolysis [Recovering/Resolving]
  - Drug interaction [Unknown]
